FAERS Safety Report 10891851 (Version 1)
Quarter: 2015Q1

REPORT INFORMATION
  Report Type: Spontaneous
  Country: GR (occurrence: GR)
  Receive Date: 20150306
  Receipt Date: 20150306
  Transmission Date: 20150721
  Serious: Yes (Hospitalization, Disabling)
  Sender: FDA-Public Use
  Company Number: GR-SA-2015SA025775

PATIENT
  Age: 37 Year
  Sex: Female
  Weight: 57 kg

DRUGS (8)
  1. ENDOXAN [Suspect]
     Active Substance: CYCLOPHOSPHAMIDE
     Indication: BREAST CANCER STAGE III
     Dosage: 4 CYCLES OF A FARMORUBICIN-ENDOXAN SCHEME
     Route: 065
     Dates: start: 20020517, end: 20020717
  2. MEDROL [Concomitant]
     Active Substance: METHYLPREDNISOLONE
     Dates: start: 200202
  3. ZOFRON [Concomitant]
     Active Substance: ONDANSETRON
     Dates: start: 200202
  4. AROMASIN [Concomitant]
     Active Substance: EXEMESTANE
     Dates: end: 20061223
  5. DAFLON [Concomitant]
     Active Substance: DIOSMIN\HESPERIDIN
  6. TAXOTERE [Suspect]
     Active Substance: DOCETAXEL
     Indication: BREAST CANCER STAGE III
     Dosage: 4 CYCLES OF TAXOTERE
     Route: 042
     Dates: start: 20020222, end: 20020426
  7. FARMORUBICIN [Suspect]
     Active Substance: EPIRUBICIN HYDROCHLORIDE
     Indication: BREAST CANCER STAGE III
     Dosage: 4 CYCLES OF A FARMORUBICIN-ENDOXAN SCHEME
     Route: 042
     Dates: start: 20020517, end: 20020717
  8. GRANOCYTE [Concomitant]
     Active Substance: LENOGRASTIM
     Dates: start: 200202

REACTIONS (8)
  - Arthropathy [Not Recovered/Not Resolved]
  - Arthralgia [Not Recovered/Not Resolved]
  - Spondyloarthropathy [Not Recovered/Not Resolved]
  - Intervertebral disc space narrowing [Not Recovered/Not Resolved]
  - Thrombophlebitis [Not Recovered/Not Resolved]
  - Arthralgia [Unknown]
  - Patellofemoral pain syndrome [Not Recovered/Not Resolved]
  - Peripheral venous disease [Not Recovered/Not Resolved]

NARRATIVE: CASE EVENT DATE: 200202
